FAERS Safety Report 9369374 (Version 3)
Quarter: 2013Q3

REPORT INFORMATION
  Report Type: Spontaneous
  Country: US (occurrence: US)
  Receive Date: 20130626
  Receipt Date: 20130815
  Transmission Date: 20140515
  Serious: Yes (Life-Threatening, Hospitalization, Other)
  Sender: FDA-Public Use
  Company Number: US-009507513-1306USA010110

PATIENT
  Age: 32 Year
  Sex: Male
  Weight: 83.9 kg

DRUGS (7)
  1. PROVENTIL [Suspect]
     Indication: ASTHMA
     Dosage: 108(90 BASE) MCG/ACT, 2 PUFFS EVERY 4-6 HOURS AS NEEDED
     Route: 055
     Dates: start: 20120308
  2. SPIRIVA [Concomitant]
     Indication: ASTHMA
     Dosage: 1 INHALACTION, ORALLY
     Route: 048
  3. SINGULAIR [Concomitant]
     Indication: HYPERSENSITIVITY
     Dosage: 10 MG, QD
     Route: 048
  4. SYMBICORT [Concomitant]
     Dosage: UNK
  5. XOLAIR [Concomitant]
     Dosage: UNK
  6. XOPENEX [Concomitant]
     Indication: ASTHMA
     Dosage: 0.63 MG, 1 AMP DAILY
     Route: 048
  7. ZYRTEC [Concomitant]
     Indication: HYPERSENSITIVITY
     Dosage: 10 MG, QD
     Route: 048

REACTIONS (1)
  - Pulmonary embolism [Recovered/Resolved]
